FAERS Safety Report 9525174 (Version 1)
Quarter: 2013Q3

REPORT INFORMATION
  Report Type: Spontaneous
  Country: US (occurrence: US)
  Receive Date: 20130916
  Receipt Date: 20130916
  Transmission Date: 20140515
  Serious: No
  Sender: FDA-Public Use
  Company Number: US-PFIZER INC-2013263000

PATIENT
  Age: 74 Year
  Sex: Male

DRUGS (4)
  1. SUTENT [Suspect]
     Indication: CONNECTIVE TISSUE NEOPLASM
     Dosage: 50 MG, CYCLIC (1 CAP QD X 21 DAYS, OFF X 14 DAYS)
     Dates: start: 20110217
  2. SUTENT [Suspect]
     Indication: GASTROINTESTINAL NEOPLASM
  3. VENLAFAXINE [Concomitant]
     Dosage: UNK
  4. AMLODIPINE [Concomitant]
     Dosage: UNK

REACTIONS (3)
  - Diarrhoea [Unknown]
  - Pain [Unknown]
  - Nausea [Unknown]
